FAERS Safety Report 25909515 (Version 3)
Quarter: 2025Q4

REPORT INFORMATION
  Report Type: Report from Study
  Country: JP (occurrence: JP)
  Receive Date: 20251011
  Receipt Date: 20251210
  Transmission Date: 20260118
  Serious: No
  Sender: ABBVIE
  Company Number: JP-ABBVIE-6470135

PATIENT
  Age: 63 Year
  Sex: Male

DRUGS (1)
  1. VYALEV [Suspect]
     Active Substance: FOSCARBIDOPA\FOSLEVODOPA
     Indication: Parkinson^s disease
     Dosage: DOSAGE: LARGER: 0.21, STANDARD: 0.17, SMALLER (DURING NIGHT): 0.15
     Route: 058
     Dates: start: 20250820

REACTIONS (5)
  - Infusion site scar [Recovering/Resolving]
  - On and off phenomenon [Unknown]
  - Insomnia [Unknown]
  - Infusion site reaction [Unknown]
  - Infusion site induration [Recovering/Resolving]

NARRATIVE: CASE EVENT DATE: 20250101
